FAERS Safety Report 8129231-4 (Version None)
Quarter: 2012Q1

REPORT INFORMATION
  Report Type: 
  Country: None (occurrence: None)
  Receive Date: 20120210
  Receipt Date: 20120209
  Transmission Date: 20120608
  Serious: Yes (Life-Threatening, Hospitalization)
  Sender: FDA-Public Use
  Company Number: US-BAYER-2012-013473

PATIENT
  Age: 58 Year
  Sex: Male

DRUGS (1)
  1. ULTRAVIST 150 [Suspect]
     Indication: UROGRAM
     Dosage: 100 ML, ONCE
     Route: 042
     Dates: start: 20120209, end: 20120209

REACTIONS (3)
  - GENERALISED ERYTHEMA [None]
  - ERYTHEMA [None]
  - THROAT TIGHTNESS [None]
